FAERS Safety Report 6646832-0 (Version None)
Quarter: 2010Q1

REPORT INFORMATION
  Report Type: 
  Country: None (occurrence: None)
  Receive Date: 20100323
  Receipt Date: 20100315
  Transmission Date: 20100710
  Serious: Yes (Life-Threatening, Hospitalization)
  Sender: FDA-Public Use
  Company Number: DE-CEPHALON-2010001015

PATIENT
  Sex: Male
  Weight: 69 kg

DRUGS (3)
  1. TREANDA [Suspect]
     Indication: CHRONIC LYMPHOCYTIC LEUKAEMIA
     Dates: start: 20091028, end: 20091128
  2. RITUXIMAB [Concomitant]
     Indication: CHRONIC LYMPHOCYTIC LEUKAEMIA
     Dates: start: 20091101, end: 20091101
  3. GLIMEPIRIDE [Concomitant]

REACTIONS (3)
  - BONE MARROW FAILURE [None]
  - HAEMORRHAGIC DISORDER [None]
  - INFECTION [None]
